FAERS Safety Report 7981357-1 (Version None)
Quarter: 2011Q4

REPORT INFORMATION
  Report Type: 
  Country: None (occurrence: None)
  Receive Date: 20111212
  Receipt Date: 20111201
  Transmission Date: 20120403
  Serious: Yes (Death)
  Sender: FDA-Public Use
  Company Number: DKLU1075305

PATIENT
  Age: 43 Year
  Sex: Female

DRUGS (5)
  1. TETNAUS VACCINE [Suspect]
     Indication: PRODUCT USED FOR UNKNOWN INDICATION
     Dosage: 1 DF DOSAGE FORM, ONCE
     Dates: start: 20111003, end: 20111003
  2. TRANXENE [Suspect]
     Indication: PRODUCT USED FOR UNKNOWN INDICATION
     Dosage: 10 MG MILLIGRAM(S), DAILY, ORAL
     Route: 048
  3. DEPAKOTE [Suspect]
     Indication: BIPOLAR DISORDER
     Dosage: 500 MG MILLIGRAM(S), DAILY, ORAL
     Route: 048
     Dates: start: 20111002
  4. TERCIAN (CYAMEMAZINE) [Suspect]
     Indication: BIPOLAR DISORDER
     Dates: end: 20110901
  5. ABILIFY [Suspect]
     Indication: BIPOLAR DISORDER
     Dates: end: 20110901

REACTIONS (5)
  - WOUND [None]
  - AGITATION [None]
  - CARDIO-RESPIRATORY ARREST [None]
  - HYPOMANIA [None]
  - CYANOSIS [None]
